FAERS Safety Report 4371513-6 (Version None)
Quarter: 2004Q2

REPORT INFORMATION
  Report Type: 
  Country: None (occurrence: None)
  Receive Date: 20040607
  Receipt Date: 20040310
  Transmission Date: 20050107
  Serious: Yes (Life-Threatening, Hospitalization)
  Sender: FDA-Public Use
  Company Number: FR-BRISTOL-MYERS SQUIBB COMPANY-12530671

PATIENT
  Age: 80 Year
  Sex: Male
  Weight: 70 kg

DRUGS (5)
  1. COAPROVEL TABS [Suspect]
     Route: 048
     Dates: start: 20040201, end: 20040301
  2. BACTRIM [Concomitant]
  3. DOLIPRANE [Concomitant]
  4. ACETYLCYSTEINE [Concomitant]
  5. CORDIPATCH [Concomitant]
     Route: 023

REACTIONS (2)
  - BRADYCARDIA [None]
  - HYPERKALAEMIA [None]
